FAERS Safety Report 9583565 (Version 2)
Quarter: 2013Q4

REPORT INFORMATION
  Report Type: Spontaneous
  Country: US (occurrence: US)
  Receive Date: 20131002
  Receipt Date: 20131002
  Transmission Date: 20140711
  Serious: No
  Sender: FDA-Public Use
  Company Number: US-AMGEN-USASP2013046534

PATIENT
  Age: 54 Year
  Sex: Female
  Weight: 46.71 kg

DRUGS (11)
  1. ENBREL [Suspect]
     Indication: PRODUCT USED FOR UNKNOWN INDICATION
     Dosage: 50 MG/ML, QWK
     Route: 058
  2. METHOTREXATE [Concomitant]
     Dosage: 2.5 MG, UNK
     Route: 048
  3. FOLIC ACID [Concomitant]
     Dosage: UNK
     Route: 048
  4. PREDNISONE [Concomitant]
     Dosage: 1 MG, UNK
     Route: 048
  5. VAGISIL                            /00104701/ [Concomitant]
     Dosage: UNK
     Route: 065
  6. KADIAN [Concomitant]
     Dosage: 30 MG, CR UNK
     Route: 048
  7. PHENERGAN                          /00033001/ [Concomitant]
     Dosage: 25 MG, UNK
     Route: 048
  8. PERCOCET                           /00446701/ [Concomitant]
     Dosage: 5-325 MG, UNK
     Route: 048
  9. FIORINAL WITH CODEINE [Concomitant]
     Dosage: 30 MG, UNK
     Route: 048
  10. XANAX [Concomitant]
     Dosage: 2 MG, UNK
     Route: 048
  11. ZANAFLEX [Concomitant]
     Dosage: 2 MG, UNK
     Route: 048

REACTIONS (2)
  - Injection site bruising [Recovered/Resolved]
  - Upper respiratory tract infection [Recovered/Resolved]
